FAERS Safety Report 6710176-9 (Version None)
Quarter: 2010Q2

REPORT INFORMATION
  Report Type: 
  Country: None (occurrence: None)
  Receive Date: 20100504
  Receipt Date: 20100423
  Transmission Date: 20101027
  Serious: Yes (Hospitalization)
  Sender: FDA-Public Use
  Company Number: US-WATSON-2010-05564

PATIENT
  Sex: Male

DRUGS (4)
  1. CYCLOSPORINE [Suspect]
     Indication: RENAL FAILURE CHRONIC
     Dosage: 4 CAPSULES, BID
     Route: 048
     Dates: start: 20100407, end: 20100419
  2. CYCLOSPORINE [Suspect]
     Indication: GLOMERULONEPHRITIS MEMBRANOUS
     Dosage: 4 CAPSULES, BID
     Route: 048
     Dates: start: 20100201, end: 20100406
  3. PREDNISONE TAB [Concomitant]
     Indication: RENAL FAILURE CHRONIC
     Route: 048
  4. PREDNISONE TAB [Concomitant]
     Indication: GLOMERULONEPHRITIS MEMBRANOUS

REACTIONS (11)
  - ASTHENIA [None]
  - BLOOD CHOLESTEROL INCREASED [None]
  - BLOOD PRESSURE INCREASED [None]
  - CONVULSION [None]
  - DIZZINESS [None]
  - DYSPNOEA [None]
  - FATIGUE [None]
  - HEADACHE [None]
  - INSOMNIA [None]
  - LOSS OF CONSCIOUSNESS [None]
  - MOOD ALTERED [None]
